FAERS Safety Report 23236691 (Version 1)
Quarter: 2023Q4

REPORT INFORMATION
  Report Type: Spontaneous
  Country: US (occurrence: US)
  Receive Date: 20231128
  Receipt Date: 20231128
  Transmission Date: 20240109
  Serious: Yes (Hospitalization, Other)
  Sender: FDA-Public Use
  Company Number: US-GLAXOSMITHKLINE-US2023GSK164883

PATIENT

DRUGS (1)
  1. VALACYCLOVIR HYDROCHLORIDE [Suspect]
     Active Substance: VALACYCLOVIR HYDROCHLORIDE
     Indication: Herpes zoster
     Dosage: 1 G, Q8 HOURS

REACTIONS (9)
  - Neurotoxicity [Recovering/Resolving]
  - Confusional state [Recovering/Resolving]
  - Ataxia [Recovering/Resolving]
  - Hallucination, visual [Recovering/Resolving]
  - Rash vesicular [Recovering/Resolving]
  - Dysarthria [Recovering/Resolving]
  - Hypokinesia [Recovering/Resolving]
  - Balance disorder [Recovering/Resolving]
  - Overdose [Unknown]
